FAERS Safety Report 25559536 (Version 3)
Quarter: 2025Q3

REPORT INFORMATION
  Report Type: Spontaneous
  Country: US (occurrence: US)
  Receive Date: 20250715
  Receipt Date: 20250715
  Transmission Date: 20251021
  Serious: No
  Sender: NOVO NORDISK
  Company Number: US-NOVOPROD-1419453

PATIENT
  Sex: Female

DRUGS (4)
  1. OZEMPIC [Suspect]
     Active Substance: SEMAGLUTIDE
     Indication: Insulin resistance
     Dosage: 0.25 MG, QW
     Dates: start: 202309
  2. OZEMPIC [Suspect]
     Active Substance: SEMAGLUTIDE
  3. OZEMPIC [Suspect]
     Active Substance: SEMAGLUTIDE
     Indication: Insulin resistance
     Dosage: 1 MG, QW
     Route: 058
  4. OZEMPIC [Suspect]
     Active Substance: SEMAGLUTIDE
     Indication: Insulin resistance
     Dosage: 2 MG, QW
     Route: 058
     Dates: start: 2024

REACTIONS (7)
  - Weight decreased [Not Recovered/Not Resolved]
  - Decreased appetite [Not Recovered/Not Resolved]
  - Blood glucose decreased [Not Recovered/Not Resolved]
  - Dyspepsia [Not Recovered/Not Resolved]
  - Eructation [Not Recovered/Not Resolved]
  - Nausea [Not Recovered/Not Resolved]
  - Poor quality product administered [Not Recovered/Not Resolved]

NARRATIVE: CASE EVENT DATE: 20230101
